FAERS Safety Report 9423027 (Version 2)
Quarter: 2013Q3

REPORT INFORMATION
  Report Type: Spontaneous
  Country: US (occurrence: US)
  Receive Date: 20130726
  Receipt Date: 20130913
  Transmission Date: 20140515
  Serious: Yes (Hospitalization)
  Sender: FDA-Public Use
  Company Number: US-GLAXOSMITHKLINE-A1034096A

PATIENT
  Age: 47 Year
  Sex: Female

DRUGS (13)
  1. CYMBALTA [Concomitant]
  2. ALBUTEROL INHALER [Concomitant]
  3. ADVAIR [Suspect]
     Indication: CHRONIC OBSTRUCTIVE PULMONARY DISEASE
     Dosage: 1PUFF TWICE PER DAY
     Route: 055
     Dates: start: 201303, end: 20130626
  4. PRILOSEC [Concomitant]
  5. LAMICTAL [Concomitant]
  6. SYNTHROID [Concomitant]
  7. HALOPERIDOL [Concomitant]
  8. COGENTIN [Concomitant]
  9. ATENOLOL [Concomitant]
  10. LISINOPRIL [Concomitant]
  11. TEMAZEPAM [Concomitant]
  12. CLONAZEPAM [Concomitant]
  13. BUSPAR [Concomitant]

REACTIONS (3)
  - Cerebrovascular accident [Recovered/Resolved]
  - Hypoaesthesia [Recovered/Resolved]
  - Transient ischaemic attack [Not Recovered/Not Resolved]
